FAERS Safety Report 18186243 (Version 1)
Quarter: 2020Q3

REPORT INFORMATION
  Report Type: Spontaneous
  Country: US (occurrence: US)
  Receive Date: 20200822
  Receipt Date: 20200822
  Transmission Date: 20201103
  Serious: Yes (Disabling, Other)
  Sender: FDA-Public Use
  Company Number: None

PATIENT
  Age: 62 Year
  Sex: Female
  Weight: 48.15 kg

DRUGS (1)
  1. VENLAFAXINE HYDROCHLORIDE. [Suspect]
     Active Substance: VENLAFAXINE HYDROCHLORIDE
     Indication: DEPRESSION
     Dosage: ?          QUANTITY:1 CAPSULE(S);?
     Route: 048
     Dates: start: 20200601, end: 20200819

REACTIONS (8)
  - Mental disorder [None]
  - Poor quality sleep [None]
  - Manufacturing issue [None]
  - Hallucination [None]
  - Anxiety [None]
  - Product quality issue [None]
  - Depression [None]
  - Cerebrovascular disorder [None]

NARRATIVE: CASE EVENT DATE: 20200817
